FAERS Safety Report 8060603-2 (Version None)
Quarter: 2012Q1

REPORT INFORMATION
  Report Type: 
  Country: None (occurrence: None)
  Receive Date: 20120120
  Receipt Date: 20120116
  Transmission Date: 20120608
  Serious: Yes (Death)
  Sender: FDA-Public Use
  Company Number: US-B.I. PHARMACEUTICALS,INC./RIDGEFIELD-2012-EU-00271GD

PATIENT
  Age: 14 Year
  Sex: Male

DRUGS (12)
  1. MELOXICAM [Suspect]
     Route: 048
  2. MORPHINE [Suspect]
  3. LISDEXAMFETAMINE DIMESYLATE [Suspect]
     Route: 048
  4. DIPHENHYDRAMINE HCL [Suspect]
     Route: 048
  5. SERTRALINE HYDROCHLORIDE [Suspect]
  6. ARIPIPRAZOLE [Suspect]
     Route: 048
  7. PENICILLIN [Suspect]
     Route: 048
  8. CLONIDINE [Suspect]
     Route: 048
  9. LAXATIVE (STIMULANT) [Suspect]
     Route: 048
  10. QUETIAPINE [Suspect]
     Route: 048
  11. VALPROIC ACID [Suspect]
     Route: 048
  12. CODEINE SULFATE [Suspect]
     Route: 048

REACTIONS (1)
  - DEATH [None]
